FAERS Safety Report 9471057 (Version 2)
Quarter: 2013Q3

REPORT INFORMATION
  Report Type: Spontaneous
  Country: CA (occurrence: CA)
  Receive Date: 20130822
  Receipt Date: 20130906
  Transmission Date: 20140515
  Serious: Yes (Other)
  Sender: FDA-Public Use
  Company Number: CA-ASTRAZENECA-2013SE63875

PATIENT
  Age: 63 Year
  Sex: Male

DRUGS (5)
  1. CRESTOR [Suspect]
     Indication: HYPERLIPIDAEMIA
     Route: 048
     Dates: start: 20100316
  2. OLMETEC [Concomitant]
     Dates: start: 20110608
  3. CANDESARTAN (SANDOZ) [Concomitant]
     Dates: start: 20130605
  4. PANTOPRAZOLE [Concomitant]
     Dates: start: 20121101
  5. VITAMIN D [Concomitant]
     Dates: start: 20120905

REACTIONS (1)
  - Dysarthria [Not Recovered/Not Resolved]
